FAERS Safety Report 7684154 (Version 2)
Quarter: 2013Q1

REPORT INFORMATION
  Report Type: Spontaneous
  Country: US (occurrence: US)
  Receive Date: 20101129
  Receipt Date: 20130318
  Transmission Date: 20140127
  Serious: Yes (Other)
  Sender: FDA-Public Use
  Company Number: US-RANBAXY-2010US-39511

PATIENT
  Age: 55 Year
  Sex: Male

DRUGS (2)
  1. BISACODYL [Suspect]
     Indication: BOWEL PREPARATION
     Dosage: UNK
     Route: 065
  2. POLYETHYLENE GLYCOL [Suspect]
     Indication: BOWEL PREPARATION
     Dosage: UNK
     Route: 065

REACTIONS (1)
  - Small intestinal obstruction [Unknown]
